FAERS Safety Report 8334950-0 (Version None)
Quarter: 2012Q2

REPORT INFORMATION
  Report Type: 
  Country: None (occurrence: None)
  Receive Date: 20120503
  Receipt Date: 20100308
  Transmission Date: 20120825
  Serious: No
  Sender: FDA-Public Use
  Company Number: US-TEVA-2010001371

PATIENT
  Sex: Female
  Weight: 86.26 kg

DRUGS (6)
  1. TRAMADOL HCL [Concomitant]
     Indication: IRRITABLE BOWEL SYNDROME
     Dates: start: 19970101
  2. EFFEXOR XR [Concomitant]
     Indication: ANXIETY DISORDER
     Dates: start: 20070101
  3. LEVOXYL [Concomitant]
     Indication: THYROID DISORDER
     Dates: start: 20090801
  4. DEPAKOTE [Concomitant]
     Indication: BIPOLAR DISORDER
     Dates: start: 20100201
  5. NUVIGIL [Suspect]
     Indication: NARCOLEPSY
     Route: 048
     Dates: start: 20100307
  6. HALOPERIDOL [Concomitant]
     Indication: TIC
     Dates: start: 20010101

REACTIONS (1)
  - DRUG INEFFECTIVE [None]
